FAERS Safety Report 22231836 (Version 1)
Quarter: 2023Q2

REPORT INFORMATION
  Report Type: Spontaneous
  Country: US (occurrence: None)
  Receive Date: 20230420
  Receipt Date: 20230420
  Transmission Date: 20230721
  Serious: No
  Sender: FDA-Public Use
  Company Number: US-ROCHE-3184332

PATIENT
  Sex: Female

DRUGS (1)
  1. ESBRIET [Suspect]
     Active Substance: PIRFENIDONE
     Indication: Idiopathic pulmonary fibrosis
     Dosage: 3-267 MG PILLS WITH EACH MEAL; ONGOING: NO
     Route: 048
     Dates: start: 20220808, end: 20220831

REACTIONS (2)
  - Flushing [Recovering/Resolving]
  - Headache [Unknown]
